FAERS Safety Report 7496930-7 (Version None)
Quarter: 2011Q2

REPORT INFORMATION
  Report Type: 
  Country: None (occurrence: None)
  Receive Date: 20110523
  Receipt Date: 20110509
  Transmission Date: 20111010
  Serious: Yes (Disabling)
  Sender: FDA-Public Use
  Company Number: US-MERCK-1105USA01473

PATIENT
  Sex: Female

DRUGS (6)
  1. CYCLOBENZAPRINE HYDROCHLORIDE [Concomitant]
     Route: 065
  2. TRAMADOL HYDROCHLORIDE [Concomitant]
     Route: 065
  3. SIMVASTATIN [Concomitant]
     Route: 065
  4. SINEMET CR [Suspect]
     Indication: PARKINSON'S DISEASE
     Route: 048
     Dates: start: 20080101
  5. LORAZEPAM [Concomitant]
     Route: 065
  6. CARBIDOPA AND LEVODOPA [Suspect]
     Route: 065

REACTIONS (3)
  - DRUG DOSE OMISSION [None]
  - ADVERSE EVENT [None]
  - CRYING [None]
